FAERS Safety Report 20968351 (Version 1)
Quarter: 2022Q2

REPORT INFORMATION
  Report Type: Spontaneous
  Country: US (occurrence: None)
  Receive Date: 20220616
  Receipt Date: 20220616
  Transmission Date: 20220721
  Serious: No
  Sender: FDA-Public Use
  Company Number: None

PATIENT
  Sex: Female

DRUGS (2)
  1. PROMACTA [Suspect]
     Active Substance: ELTROMBOPAG OLAMINE
  2. FARXIGA [Concomitant]
     Indication: Immune thrombocytopenia
     Route: 048
     Dates: start: 20210401

REACTIONS (1)
  - Fall [None]
